FAERS Safety Report 7458007-6 (Version None)
Quarter: 2011Q2

REPORT INFORMATION
  Report Type: 
  Country: None (occurrence: None)
  Receive Date: 20110503
  Receipt Date: 20110503
  Transmission Date: 20111010
  Serious: Yes (Hospitalization)
  Sender: FDA-Public Use
  Company Number: None

PATIENT
  Age: 69 Year
  Sex: Male

DRUGS (1)
  1. SORIATANE [Suspect]
     Indication: PITYRIASIS RUBRA PILARIS
     Dosage: 25MG DAILY BUCCAL
     Route: 002
     Dates: start: 20110331, end: 20110407

REACTIONS (7)
  - ERYTHEMA [None]
  - GENERALISED OEDEMA [None]
  - SKIN EXFOLIATION [None]
  - SKIN OEDEMA [None]
  - HYPOXIA [None]
  - RETINOIC ACID SYNDROME [None]
  - PULMONARY CONGESTION [None]
